FAERS Safety Report 17403551 (Version 1)
Quarter: 2020Q1

REPORT INFORMATION
  Report Type: Spontaneous
  Country: US (occurrence: US)
  Receive Date: 20200211
  Receipt Date: 20200211
  Transmission Date: 20200409
  Serious: No
  Sender: FDA-Public Use
  Company Number: US-PERRIGO-19US007755

PATIENT
  Age: 56 Year
  Sex: Male
  Weight: 113.38 kg

DRUGS (1)
  1. CETIRIZINE HYDROCHLORIDE. [Suspect]
     Active Substance: CETIRIZINE HYDROCHLORIDE
     Indication: SEASONAL ALLERGY
     Dosage: 20 OR 30 MG, SINGLE
     Route: 048
     Dates: start: 20190625, end: 20190625

REACTIONS (3)
  - Abdominal pain upper [Unknown]
  - Yawning [Unknown]
  - Overdose [Recovered/Resolved]

NARRATIVE: CASE EVENT DATE: 20190625
